FAERS Safety Report 8248876-4 (Version None)
Quarter: 2012Q2

REPORT INFORMATION
  Report Type: 
  Country: None (occurrence: None)
  Receive Date: 20120401
  Receipt Date: 20120320
  Transmission Date: 20120825
  Serious: No
  Sender: FDA-Public Use
  Company Number: US-ELI_LILLY_AND_COMPANY-US201203006900

PATIENT
  Sex: Male

DRUGS (3)
  1. SIMVASTATIN [Concomitant]
  2. TYLENOL                                 /SCH/ [Concomitant]
     Dosage: UNK
  3. CYMBALTA [Suspect]
     Indication: BACK PAIN
     Dosage: UNK UNK, UNKNOWN

REACTIONS (1)
  - HEPATIC ENZYME INCREASED [None]
